FAERS Safety Report 11860764 (Version 1)
Quarter: 2015Q4

REPORT INFORMATION
  Report Type: Spontaneous
  Country: US (occurrence: US)
  Receive Date: 20151222
  Receipt Date: 20151222
  Transmission Date: 20160305
  Serious: Yes (Hospitalization, Other)
  Sender: FDA-Public Use
  Company Number: US-SA-2015SA214315

PATIENT
  Age: 0 Day
  Sex: Female
  Weight: 2.46 kg

DRUGS (12)
  1. SEROQUEL [Suspect]
     Active Substance: QUETIAPINE FUMARATE
     Route: 064
     Dates: start: 20140409, end: 20141212
  2. NICOTINE. [Suspect]
     Active Substance: NICOTINE
     Dosage: DOSE AND DAILY DOSE: 0.5 PACKS
     Route: 063
     Dates: start: 20141212, end: 2015
  3. BUPRENORPHINE HYDROCHLORIDE. [Suspect]
     Active Substance: BUPRENORPHINE HYDROCHLORIDE
     Route: 064
     Dates: start: 2014, end: 20141212
  4. SUBOXONE [Suspect]
     Active Substance: BUPRENORPHINE HYDROCHLORIDE\NALOXONE HYDROCHLORIDE
     Dosage: PRODUCT STOP DATE: 2014?FORM: FILM
     Route: 064
     Dates: start: 20140409
  5. INSULIN [Suspect]
     Active Substance: INSULIN NOS
     Route: 063
     Dates: start: 20141212, end: 2015
  6. BUPRENORPHINE HYDROCHLORIDE. [Suspect]
     Active Substance: BUPRENORPHINE HYDROCHLORIDE
     Route: 063
     Dates: start: 20141212, end: 2015
  7. AMBIEN [Suspect]
     Active Substance: ZOLPIDEM TARTRATE
     Route: 063
     Dates: start: 20141212, end: 2015
  8. AMBIEN [Suspect]
     Active Substance: ZOLPIDEM TARTRATE
     Route: 064
     Dates: start: 20140409, end: 20141212
  9. INSULIN [Suspect]
     Active Substance: INSULIN NOS
     Route: 064
     Dates: start: 20140409, end: 20141212
  10. SEROQUEL [Suspect]
     Active Substance: QUETIAPINE FUMARATE
     Route: 063
     Dates: start: 20141212, end: 2015
  11. NICOTINE. [Suspect]
     Active Substance: NICOTINE
     Dosage: DOSE AND DAILY DOSE: 0.5 PACKS
     Route: 064
     Dates: start: 20140409, end: 20141212
  12. BUPRENORPHINE HYDROCHLORIDE. [Suspect]
     Active Substance: BUPRENORPHINE HYDROCHLORIDE
     Route: 064
     Dates: start: 2014, end: 2014

REACTIONS (9)
  - Jaundice neonatal [Recovered/Resolved]
  - Gastrooesophageal reflux disease [Not Recovered/Not Resolved]
  - Exposure during breast feeding [Unknown]
  - Drug withdrawal syndrome neonatal [Recovered/Resolved]
  - Infantile colic [Recovered/Resolved]
  - Premature baby [Recovered/Resolved]
  - Low birth weight baby [Recovered/Resolved]
  - Neonatal disorder [Not Recovered/Not Resolved]
  - Foetal exposure during pregnancy [Unknown]

NARRATIVE: CASE EVENT DATE: 201412
